FAERS Safety Report 5090338-X (Version None)
Quarter: 2006Q3

REPORT INFORMATION
  Report Type: 
  Country: None (occurrence: None)
  Receive Date: 20060828
  Receipt Date: 20060721
  Transmission Date: 20061208
  Serious: Yes (Other)
  Sender: FDA-Public Use
  Company Number: US-GLAXOSMITHKLINE-A0613224A

PATIENT

DRUGS (1)
  1. WELLBUTRIN XL [Suspect]

REACTIONS (1)
  - HEPATIC ENZYME INCREASED [None]
